FAERS Safety Report 7456695-1 (Version None)
Quarter: 2011Q2

REPORT INFORMATION
  Report Type: 
  Country: None (occurrence: None)
  Receive Date: 20110503
  Receipt Date: 20100511
  Transmission Date: 20111010
  Serious: No
  Sender: FDA-Public Use
  Company Number: US-SANOFI-AVENTIS-2010SA027753

PATIENT
  Age: 63 Year
  Sex: Female

DRUGS (2)
  1. APIDRA [Suspect]
     Dosage: DOSE:24 UNIT(S)
     Route: 058
     Dates: start: 20100510
  2. LANTUS [Suspect]
     Dates: start: 20100510

REACTIONS (2)
  - PAIN IN EXTREMITY [None]
  - GAIT DISTURBANCE [None]
